FAERS Safety Report 12803929 (Version 2)
Quarter: 2016Q4

REPORT INFORMATION
  Report Type: Spontaneous
  Country: US (occurrence: US)
  Receive Date: 20161003
  Receipt Date: 20161004
  Transmission Date: 20170207
  Serious: No
  Sender: FDA-Public Use
  Company Number: US-BAYER-2016-185149

PATIENT
  Age: 59 Year
  Sex: Male
  Weight: 81.63 kg

DRUGS (4)
  1. MIRALAX [Suspect]
     Active Substance: POLYETHYLENE GLYCOL 3350
     Indication: GASTROINTESTINAL DISORDER
     Dosage: 1 DF, QD
     Route: 048
     Dates: start: 2015
  2. NEXIUM [Concomitant]
     Active Substance: ESOMEPRAZOLE MAGNESIUM
     Dosage: UNK
  3. LINZESS [Concomitant]
     Active Substance: LINACLOTIDE
     Dosage: UNK
     Dates: start: 20160920
  4. HYDROCODONE [Concomitant]
     Active Substance: HYDROCODONE
     Indication: PAIN
     Dosage: 3 DF, UNK
     Route: 048
     Dates: start: 2013

REACTIONS (4)
  - Flatulence [Recovered/Resolved with Sequelae]
  - Product use issue [None]
  - Frequent bowel movements [None]
  - Abdominal distension [Recovered/Resolved with Sequelae]

NARRATIVE: CASE EVENT DATE: 2015
